FAERS Safety Report 6827443-0 (Version None)
Quarter: 2010Q3

REPORT INFORMATION
  Report Type: 
  Country: None (occurrence: None)
  Receive Date: 20100709
  Receipt Date: 20070115
  Transmission Date: 20110219
  Serious: No
  Sender: FDA-Public Use
  Company Number: US-PFIZER INC-2007004476

PATIENT
  Sex: Female
  Weight: 45.81 kg

DRUGS (5)
  1. CHANTIX [Suspect]
     Indication: SMOKING CESSATION THERAPY
     Dates: start: 20070106
  2. FLOVENT [Concomitant]
     Indication: ASTHMA
  3. ZYRTEC [Concomitant]
     Indication: MULTIPLE ALLERGIES
  4. MAXZIDE [Concomitant]
     Indication: HYPERTENSION
  5. ESTRACE [Concomitant]
     Indication: MENOPAUSAL SYMPTOMS PROPHYLAXIS

REACTIONS (2)
  - NAUSEA [None]
  - VOMITING [None]
